FAERS Safety Report 5916218-2 (Version None)
Quarter: 2008Q4

REPORT INFORMATION
  Report Type: 
  Country: None (occurrence: None)
  Receive Date: 20081013
  Receipt Date: 20081002
  Transmission Date: 20090506
  Serious: Yes (Other)
  Sender: FDA-Public Use
  Company Number: US-ROCHE-579151

PATIENT
  Sex: Female
  Weight: 60.8 kg

DRUGS (2)
  1. CAPECITABINE [Suspect]
     Route: 048
     Dates: start: 20071226
  2. ABRAXANE [Concomitant]

REACTIONS (2)
  - DISEASE PROGRESSION [None]
  - PAIN IN EXTREMITY [None]
